FAERS Safety Report 8582145-8 (Version None)
Quarter: 2012Q3

REPORT INFORMATION
  Report Type: 
  Country: None (occurrence: None)
  Receive Date: 20120727
  Receipt Date: 20120718
  Transmission Date: 20120928
  Serious: Yes (Other)
  Sender: FDA-Public Use
  Company Number: DSA_58600_2012

PATIENT
  Age: 72 Year
  Sex: Female

DRUGS (3)
  1. FLUOROURACIL [Suspect]
     Indication: OROPHARYNGEAL CANCER STAGE UNSPECIFIED
     Dosage: (DF)
  2. CISPLATIN [Suspect]
     Indication: OROPHARYNGEAL CANCER STAGE UNSPECIFIED
     Dosage: (DF)
  3. DOCETAXEL [Suspect]
     Indication: OROPHARYNGEAL CANCER STAGE UNSPECIFIED
     Dosage: (DF)

REACTIONS (4)
  - BLOOD CREATININE INCREASED [None]
  - LEUKOENCEPHALOPATHY [None]
  - BLOOD UREA INCREASED [None]
  - BLOOD MAGNESIUM DECREASED [None]
